FAERS Safety Report 8358660-9 (Version None)
Quarter: 2012Q2

REPORT INFORMATION
  Report Type: 
  Country: None (occurrence: None)
  Receive Date: 20120514
  Receipt Date: 20120509
  Transmission Date: 20120825
  Serious: Yes (Hospitalization, Other)
  Sender: FDA-Public Use
  Company Number: US-MERCK-1202USA00897

PATIENT
  Age: 77 Year
  Sex: Female
  Weight: 68 kg

DRUGS (11)
  1. ALENDRONATE SODIUM [Suspect]
     Route: 048
     Dates: start: 20091001, end: 20101001
  2. VITAMINS (UNSPECIFIED) [Concomitant]
     Route: 065
  3. VITAMIN D (UNSPECIFIED) [Concomitant]
     Route: 065
  4. EFFEXOR [Concomitant]
     Route: 048
  5. FOSAMAX [Suspect]
     Route: 048
     Dates: end: 20101026
  6. FOSAMAX [Suspect]
     Indication: OSTEOPOROSIS
     Route: 048
     Dates: start: 20030101, end: 20080101
  7. XANAX [Concomitant]
     Route: 065
  8. EXELON [Concomitant]
     Route: 048
  9. ALENDRONATE SODIUM [Suspect]
     Indication: OSTEOPOROSIS
     Route: 048
     Dates: start: 20090101, end: 20090101
  10. CALCIUM (UNSPECIFIED) [Concomitant]
     Route: 065
  11. CYMBALTA [Concomitant]
     Route: 065

REACTIONS (45)
  - HIP FRACTURE [None]
  - SJOGREN'S SYNDROME [None]
  - URINARY INCONTINENCE [None]
  - HAEMOGLOBIN DECREASED [None]
  - FEMUR FRACTURE [None]
  - DRUG HYPERSENSITIVITY [None]
  - REFUSAL OF TREATMENT BY PATIENT [None]
  - ARTHRALGIA [None]
  - VOMITING [None]
  - GASTROOESOPHAGEAL REFLUX DISEASE [None]
  - ADENOIDAL DISORDER [None]
  - ARTHRITIS [None]
  - ARTERIOSCLEROSIS [None]
  - ANXIETY [None]
  - VITAMIN D DEFICIENCY [None]
  - CATARACT [None]
  - CONSTIPATION [None]
  - TYPE 2 DIABETES MELLITUS [None]
  - MOUTH ULCERATION [None]
  - CORONARY ARTERY DISEASE [None]
  - DEPENDENCE [None]
  - UTERINE DISORDER [None]
  - HIP ARTHROPLASTY [None]
  - ROSACEA [None]
  - ARTHROPATHY [None]
  - INSOMNIA [None]
  - BONE DENSITY DECREASED [None]
  - APPENDIX DISORDER [None]
  - GASTROINTESTINAL DISORDER [None]
  - LIMB ASYMMETRY [None]
  - HYPERGLYCAEMIA [None]
  - SUICIDAL IDEATION [None]
  - ANXIETY DISORDER [None]
  - BLEPHARITIS [None]
  - HAND FRACTURE [None]
  - INTERVERTEBRAL DISC PROTRUSION [None]
  - HYPOTHYROIDISM [None]
  - ANAEMIA POSTOPERATIVE [None]
  - FIBROMYALGIA [None]
  - FALL [None]
  - DRUG INEFFECTIVE [None]
  - TONSILLAR DISORDER [None]
  - OSTEOARTHRITIS [None]
  - DEPRESSION [None]
  - DEMENTIA ALZHEIMER'S TYPE [None]
